FAERS Safety Report 8770879 (Version 1)
Quarter: 2012Q4

REPORT INFORMATION
  Report Type: 
  Country: CN (occurrence: CN)
  Receive Date: 20120906
  Receipt Date: 20120906
  Transmission Date: 20130627
  Serious: Yes (Other)
  Sender: FDA-Public Use
  Company Number: CN-ASTRAZENECA-2012SE65688

PATIENT
  Sex: Male
  Weight: 82 kg

DRUGS (2)
  1. PROPOFOL [Suspect]
     Route: 042
     Dates: start: 20111019, end: 20111020
  2. ATROPINE SULFATE [Suspect]
     Indication: SCHIZOPHRENIA
     Route: 042
     Dates: start: 20111019, end: 20111020

REACTIONS (2)
  - Arrhythmia [Recovered/Resolved]
  - Extrasystoles [Recovered/Resolved]
